FAERS Safety Report 17569119 (Version 1)
Quarter: 2020Q1

REPORT INFORMATION
  Report Type: Spontaneous
  Country: CA (occurrence: CA)
  Receive Date: 20200322
  Receipt Date: 20200322
  Transmission Date: 20200409
  Serious: Yes (Hospitalization, Other)
  Sender: FDA-Public Use
  Company Number: NVSC2020CA080115

PATIENT
  Age: 61 Year
  Sex: Female
  Weight: 85 kg

DRUGS (48)
  1. DOXORUBICIN HYDROCHLORIDE. [Suspect]
     Active Substance: DOXORUBICIN HYDROCHLORIDE
     Dosage: 1 DF, Q2W
     Route: 042
  2. PEGFILGRASTIM [Suspect]
     Active Substance: PEGFILGRASTIM
     Dosage: 6 MG, UNKNOWN
     Route: 058
  3. EMEND [Suspect]
     Active Substance: APREPITANT
     Dosage: 125 MG, CYCLIC
     Route: 048
  4. EMEND [Suspect]
     Active Substance: APREPITANT
     Dosage: 80 MG, QD
     Route: 048
  5. TRASTUZUMAB. [Suspect]
     Active Substance: TRASTUZUMAB
     Indication: BREAST CANCER
     Dosage: UNK
     Route: 065
  6. CITALOPRAM [Concomitant]
     Active Substance: CITALOPRAM HYDROBROMIDE
     Indication: PRODUCT USED FOR UNKNOWN INDICATION
     Dosage: UNK
     Route: 065
  7. DOXORUBICIN HYDROCHLORIDE. [Suspect]
     Active Substance: DOXORUBICIN HYDROCHLORIDE
     Dosage: 1 DF, Q2W
     Route: 042
  8. PEGFILGRASTIM [Suspect]
     Active Substance: PEGFILGRASTIM
     Indication: SUPPORTIVE CARE
     Dosage: 6 MG, UNKNOWN
     Route: 058
  9. PEGFILGRASTIM [Suspect]
     Active Substance: PEGFILGRASTIM
     Dosage: 6 MG, UNKNOWN
     Route: 058
  10. DOXORUBICIN HYDROCHLORIDE. [Suspect]
     Active Substance: DOXORUBICIN HYDROCHLORIDE
     Indication: BREAST CANCER
     Dosage: UNK UNK, CYCLIC
     Route: 042
  11. DOXORUBICIN HYDROCHLORIDE. [Suspect]
     Active Substance: DOXORUBICIN HYDROCHLORIDE
     Dosage: 1 DF, Q2W
     Route: 042
  12. ONDANSETRON [Suspect]
     Active Substance: ONDANSETRON
     Dosage: 8 MG, UNKNOWN
     Route: 048
  13. EMEND [Suspect]
     Active Substance: APREPITANT
     Dosage: 125 MG, UNKNOWN
     Route: 048
  14. ACETAMINOPHEN. [Concomitant]
     Active Substance: ACETAMINOPHEN
     Indication: PRODUCT USED FOR UNKNOWN INDICATION
     Dosage: UNK
     Route: 065
  15. DEXAMETHASONE. [Concomitant]
     Active Substance: DEXAMETHASONE
     Indication: PRODUCT USED FOR UNKNOWN INDICATION
     Dosage: UNK
     Route: 065
  16. DOXORUBICIN HYDROCHLORIDE. [Suspect]
     Active Substance: DOXORUBICIN HYDROCHLORIDE
     Dosage: 1 DF, Q2W
     Route: 042
  17. ONDANSETRON [Suspect]
     Active Substance: ONDANSETRON
     Dosage: 8 MG, UNKNOWN
     Route: 048
  18. ONDANSETRON [Suspect]
     Active Substance: ONDANSETRON
     Dosage: 8 MG, UNKNOWN
     Route: 048
  19. ONDANSETRON [Suspect]
     Active Substance: ONDANSETRON
     Dosage: 8 MG, UNKNOWN
     Route: 048
  20. PEGFILGRASTIM [Suspect]
     Active Substance: PEGFILGRASTIM
     Dosage: 6 MG, UNKNOWN
     Route: 058
  21. EMEND [Suspect]
     Active Substance: APREPITANT
     Indication: SUPPORTIVE CARE
     Dosage: 800 MG, QD
     Route: 048
  22. PROCYTOX [Suspect]
     Active Substance: CYCLOPHOSPHAMIDE
     Dosage: 1210 MG, CYCLIC
     Route: 042
  23. GABAPENTIN. [Concomitant]
     Active Substance: GABAPENTIN
     Indication: PRODUCT USED FOR UNKNOWN INDICATION
     Dosage: UNK
     Route: 065
  24. ONDANSETRON [Suspect]
     Active Substance: ONDANSETRON
     Indication: SUPPORTIVE CARE
     Dosage: 8 MG, UNKNOWN
     Route: 048
  25. PEGFILGRASTIM [Suspect]
     Active Substance: PEGFILGRASTIM
     Dosage: 6 MG, UNKNOWN
     Route: 058
  26. EMEND [Suspect]
     Active Substance: APREPITANT
     Dosage: 80 MG, QD
     Route: 048
  27. ONDANSETRON [Suspect]
     Active Substance: ONDANSETRON
     Dosage: 8 MG, UNKNOWN
     Route: 048
  28. EMEND [Suspect]
     Active Substance: APREPITANT
     Dosage: 125 MG, UNKNOWN
     Route: 048
  29. PREDNISONE. [Suspect]
     Active Substance: PREDNISONE
     Dosage: 30 MG, QD
     Route: 065
  30. PROCYTOX [Suspect]
     Active Substance: CYCLOPHOSPHAMIDE
     Dosage: 1210 MG, CYCLIC
     Route: 042
  31. PROCYTOX [Suspect]
     Active Substance: CYCLOPHOSPHAMIDE
     Dosage: 1210 MG, CYCLIC
     Route: 042
  32. NAPROXEN. [Concomitant]
     Active Substance: NAPROXEN
     Indication: PRODUCT USED FOR UNKNOWN INDICATION
     Dosage: UNK
     Route: 065
  33. VITAMIN D [Concomitant]
     Active Substance: VITAMIN D NOS
     Indication: PRODUCT USED FOR UNKNOWN INDICATION
     Dosage: UNK
     Route: 065
  34. ONDANSETRON [Suspect]
     Active Substance: ONDANSETRON
     Dosage: 8 MG, UNKNOWN
     Route: 048
  35. ONDANSETRON [Suspect]
     Active Substance: ONDANSETRON
     Dosage: 8 MG, UNKNOWN
     Route: 048
  36. PANTOPRAZOLE [Suspect]
     Active Substance: PANTOPRAZOLE
     Indication: PRODUCT USED FOR UNKNOWN INDICATION
     Dosage: 40 MG, QD
     Route: 048
  37. EMEND [Suspect]
     Active Substance: APREPITANT
     Dosage: 125 MG, UNKNOWN
     Route: 048
  38. EMEND [Suspect]
     Active Substance: APREPITANT
     Dosage: 125 MG, UNKNOWN
     Route: 048
  39. METOCLOPRAMIDE. [Suspect]
     Active Substance: METOCLOPRAMIDE
     Indication: PRODUCT USED FOR UNKNOWN INDICATION
     Dosage: 10 MG, QD
     Route: 048
  40. PROCYTOX [Suspect]
     Active Substance: CYCLOPHOSPHAMIDE
     Indication: BREAST CANCER
     Dosage: 1210 MG, CYCLIC
     Route: 042
  41. TAMIFLU [Suspect]
     Active Substance: OSELTAMIVIR PHOSPHATE
     Indication: PRODUCT USED FOR UNKNOWN INDICATION
     Dosage: 75 MG, BID
     Route: 065
  42. HYDROMORPHONE [Concomitant]
     Active Substance: HYDROMORPHONE
     Indication: PRODUCT USED FOR UNKNOWN INDICATION
     Dosage: UNK
     Route: 065
  43. PEGFILGRASTIM [Suspect]
     Active Substance: PEGFILGRASTIM
     Dosage: 6 MG, UNKNOWN
     Route: 058
  44. PEGFILGRASTIM [Suspect]
     Active Substance: PEGFILGRASTIM
     Dosage: 6 MG, UNKNOWN
     Route: 058
  45. EMEND [Suspect]
     Active Substance: APREPITANT
     Dosage: 80 MG, QD
     Route: 048
  46. LEVAQUIN [Suspect]
     Active Substance: LEVOFLOXACIN
     Indication: PRODUCT USED FOR UNKNOWN INDICATION
     Dosage: 500 MG, QD
     Route: 048
  47. PREDNISONE. [Suspect]
     Active Substance: PREDNISONE
     Indication: PRODUCT USED FOR UNKNOWN INDICATION
     Dosage: 40 MG, QD
     Route: 065
  48. PACLITAXEL. [Concomitant]
     Active Substance: PACLITAXEL
     Indication: PRODUCT USED FOR UNKNOWN INDICATION
     Dosage: UNK
     Route: 065

REACTIONS (8)
  - Nausea [Recovered/Resolved]
  - Gastrointestinal disorder [Recovered/Resolved]
  - Respiratory syncytial virus infection [Recovered/Resolved]
  - Asthenia [Recovered/Resolved]
  - Respiratory failure [Recovered/Resolved]
  - Decreased appetite [Recovered/Resolved]
  - Dyspnoea [Recovered/Resolved]
  - Atelectasis [Recovered/Resolved]
